FAERS Safety Report 16064646 (Version 1)
Quarter: 2019Q1

REPORT INFORMATION
  Report Type: Report from Study
  Country: CN (occurrence: CN)
  Receive Date: 20190312
  Receipt Date: 20190312
  Transmission Date: 20190418
  Serious: Yes (Death)
  Sender: FDA-Public Use
  Company Number: CN-GE HEALTHCARE LIFE SCIENCES-2019OBU001234

PATIENT

DRUGS (6)
  1. CLOPIDOGREL [Concomitant]
     Active Substance: CLOPIDOGREL BISULFATE
     Indication: ANTIPLATELET THERAPY
     Dosage: 300 MG, UNK
     Route: 048
     Dates: start: 20190131, end: 20190131
  2. BIVALIRUDIN. [Concomitant]
     Active Substance: BIVALIRUDIN
     Indication: ANTICOAGULATION DRUG LEVEL THERAPEUTIC
     Dosage: 0.5 G, UNK
     Route: 042
     Dates: start: 20190131, end: 20190131
  3. HEPARIN [Concomitant]
     Active Substance: HEPARIN SODIUM
     Indication: ANTICOAGULATION DRUG LEVEL THERAPEUTIC
     Dosage: 2500 UNK, UNK
     Route: 042
     Dates: start: 20190131, end: 20190131
  4. ASPIRIN. [Concomitant]
     Active Substance: ASPIRIN
     Indication: ANTIPLATELET THERAPY
     Dosage: 300 MG, UNK
     Route: 048
     Dates: start: 20190131, end: 20190131
  5. VISIPAQUE [Suspect]
     Active Substance: IODIXANOL
     Indication: ACUTE MYOCARDIAL INFARCTION
     Dosage: 120 ML, SINGLE
     Route: 042
     Dates: start: 20190131, end: 20190131
  6. TIROFIBAN [Concomitant]
     Active Substance: TIROFIBAN
     Indication: ANTICOAGULATION DRUG LEVEL THERAPEUTIC
     Dosage: 12.5 MG, UNK
     Route: 042
     Dates: start: 20190131, end: 20190201

REACTIONS (1)
  - Sudden death [Fatal]

NARRATIVE: CASE EVENT DATE: 20190215
